FAERS Safety Report 24070060 (Version 1)
Quarter: 2024Q3

REPORT INFORMATION
  Report Type: Report from Study
  Country: MY (occurrence: MY)
  Receive Date: 20240710
  Receipt Date: 20240710
  Transmission Date: 20241016
  Serious: No
  Sender: ROCHE
  Company Number: MY-ROCHE-3554216

PATIENT
  Age: 37 Year
  Sex: Female

DRUGS (1)
  1. PHESGO [Suspect]
     Active Substance: HYALURONIDASE-ZZXF\PERTUZUMAB\TRASTUZUMAB
     Indication: Breast cancer
     Route: 065

REACTIONS (6)
  - Mouth ulceration [Unknown]
  - Feeding disorder [Unknown]
  - Chapped lips [Unknown]
  - Feeling hot [Unknown]
  - Onychoclasis [Unknown]
  - Fungal infection [Unknown]
